APPROVED DRUG PRODUCT: PIPERACILLIN AND TAZOBACTAM
Active Ingredient: PIPERACILLIN SODIUM; TAZOBACTAM SODIUM
Strength: EQ 3GM BASE/VIAL;EQ 375MG BASE/VIAL
Dosage Form/Route: INJECTABLE;INJECTION
Application: A206996 | Product #002 | TE Code: AP
Applicant: APOTEX INC
Approved: Mar 22, 2017 | RLD: No | RS: Yes | Type: RX